FAERS Safety Report 6871394-2 (Version None)
Quarter: 2010Q3

REPORT INFORMATION
  Report Type: 
  Country: None (occurrence: None)
  Receive Date: 20100723
  Receipt Date: 20100712
  Transmission Date: 20110219
  Serious: Yes (Hospitalization, Disabling, Other)
  Sender: FDA-Public Use
  Company Number: US-PFIZER INC-2008088856

PATIENT
  Sex: Male

DRUGS (2)
  1. CHANTIX [Suspect]
     Indication: SMOKING CESSATION THERAPY
     Dosage: 0.5 MG, UNK
     Dates: start: 20070906, end: 20071101
  2. CHANTIX [Suspect]
     Dosage: 1 MG, UNK
     Dates: start: 20070906, end: 20071101

REACTIONS (11)
  - AGGRESSION [None]
  - ANXIETY [None]
  - BLINDNESS [None]
  - COGNITIVE DISORDER [None]
  - DEPRESSION [None]
  - EYE HAEMORRHAGE [None]
  - MEMORY IMPAIRMENT [None]
  - MOOD SWINGS [None]
  - NEPHROLITHIASIS [None]
  - PAPILLOEDEMA [None]
  - UNEVALUABLE EVENT [None]
